FAERS Safety Report 9476247 (Version 2)
Quarter: 2013Q4

REPORT INFORMATION
  Report Type: Spontaneous
  Country: FR (occurrence: FR)
  Receive Date: 20130826
  Receipt Date: 20131011
  Transmission Date: 20140711
  Serious: No
  Sender: FDA-Public Use
  Company Number: FR-JNJFOC-20130809400

PATIENT
  Age: 87 Year
  Sex: Female

DRUGS (2)
  1. DUROGESIC [Suspect]
     Indication: BACK PAIN
     Route: 062
     Dates: start: 20130813
  2. DUROGESIC [Suspect]
     Indication: BACK PAIN
     Route: 062
     Dates: start: 20130816

REACTIONS (2)
  - Wrong technique in drug usage process [Unknown]
  - Drug prescribing error [Unknown]
